FAERS Safety Report 7865556-5 (Version None)
Quarter: 2011Q4

REPORT INFORMATION
  Report Type: 
  Country: None (occurrence: None)
  Receive Date: 20111028
  Receipt Date: 20110117
  Transmission Date: 20120403
  Serious: No
  Sender: FDA-Public Use
  Company Number: US-GLAXOSMITHKLINE-A0906498A

PATIENT
  Age: 65 Year
  Sex: Female

DRUGS (10)
  1. SPIRIVA [Concomitant]
  2. CIPROFLOXACIN [Concomitant]
  3. ADVAIR DISKUS 100/50 [Suspect]
     Indication: CHRONIC OBSTRUCTIVE PULMONARY DISEASE
     Dosage: 1PUFF TWICE PER DAY
     Route: 055
     Dates: start: 20101201
  4. DILANTIN [Concomitant]
  5. PHENOBARBITAL TAB [Concomitant]
  6. SYNTHROID [Concomitant]
  7. FOLIC ACID [Concomitant]
  8. POTASSIUM [Concomitant]
     Route: 048
  9. HYDROCHLOROTHIAZIDE [Concomitant]
     Indication: HYPERTENSION
     Route: 048
  10. QUINAPRIL [Concomitant]

REACTIONS (1)
  - HAEMOPTYSIS [None]
